FAERS Safety Report 25181285 (Version 1)
Quarter: 2025Q2

REPORT INFORMATION
  Report Type: Spontaneous
  Country: US (occurrence: US)
  Receive Date: 20250410
  Receipt Date: 20250410
  Transmission Date: 20250717
  Serious: No
  Sender: ROCHE
  Company Number: US-ROCHE-10000248522

PATIENT
  Age: 32 Year
  Sex: Female
  Weight: 68.03 kg

DRUGS (6)
  1. XOLAIR [Suspect]
     Active Substance: OMALIZUMAB
     Indication: Urticaria
     Route: 058
     Dates: start: 2024
  2. XOLAIR [Suspect]
     Active Substance: OMALIZUMAB
  3. ZYRTEC [Concomitant]
     Active Substance: CETIRIZINE HYDROCHLORIDE
     Indication: Urticaria
     Dosage: (2) 10 MG TABS TWICE DAILY
     Route: 048
     Dates: start: 2024
  4. PEPCID [Concomitant]
     Active Substance: FAMOTIDINE
     Indication: Urticaria
     Route: 048
     Dates: start: 2024
  5. SINGULAIR [Concomitant]
     Active Substance: MONTELUKAST SODIUM
     Indication: Urticaria
     Dosage: STARTED IN EITHER -JUN-2024 OR -JUL-2024
     Route: 048
     Dates: start: 2024
  6. INSULIN LISPRO [Concomitant]
     Active Substance: INSULIN LISPRO
     Indication: Diabetes mellitus
     Route: 050

REACTIONS (4)
  - Exposure via skin contact [Unknown]
  - Wrong technique in product usage process [Unknown]
  - Skin haemorrhage [Unknown]
  - Device deployment issue [Unknown]

NARRATIVE: CASE EVENT DATE: 20250329
